FAERS Safety Report 4754654-0 (Version None)
Quarter: 2005Q3

REPORT INFORMATION
  Report Type: 
  Country: None (occurrence: None)
  Receive Date: 20050825
  Receipt Date: 20050812
  Transmission Date: 20060218
  Serious: Yes (Death, Hospitalization)
  Sender: FDA-Public Use
  Company Number: 2005111822

PATIENT
  Age: 54 Year
  Sex: Female

DRUGS (6)
  1. LYRICA [Suspect]
     Indication: NEUROPATHIC PAIN
     Dosage: 75 MG (75 MG, 1 IN 1 D), ORAL
     Route: 048
     Dates: start: 20050622, end: 20050622
  2. PREDNISONE [Concomitant]
  3. HYDROMORPHONE HCL [Concomitant]
  4. LANSOPRAZOLE [Concomitant]
  5. DOMPERIDONE (DOMPERIDONE) [Concomitant]
  6. NOVORAPID (INSULIN ASPART) [Concomitant]

REACTIONS (3)
  - EMOTIONAL DISTRESS [None]
  - SOMNOLENCE [None]
  - VERTIGO [None]
